FAERS Safety Report 11438130 (Version 1)
Quarter: 2015Q3

REPORT INFORMATION
  Report Type: Report from Study
  Country: US (occurrence: US)
  Receive Date: 20150901
  Receipt Date: 20150901
  Transmission Date: 20151125
  Serious: No
  Sender: FDA-Public Use
  Company Number: US-ROCHE-GNE220297

PATIENT
  Sex: Female

DRUGS (9)
  1. RAPTIVA [Suspect]
     Active Substance: EFALIZUMAB
     Indication: PSORIASIS
     Dosage: 64 MG, 1/WEEK
     Route: 065
     Dates: start: 20051209
  2. RAPTIVA [Suspect]
     Active Substance: EFALIZUMAB
     Route: 065
  3. PHENERGAN [Concomitant]
     Active Substance: PROMETHAZINE HYDROCHLORIDE
     Indication: PRODUCT USED FOR UNKNOWN INDICATION
     Dosage: 25 MG, PRN
     Route: 065
  4. RAPTIVA [Suspect]
     Active Substance: EFALIZUMAB
     Indication: PUSTULAR PSORIASIS
     Route: 065
  5. RAPTIVA [Suspect]
     Active Substance: EFALIZUMAB
     Route: 065
  6. RAPTIVA [Suspect]
     Active Substance: EFALIZUMAB
     Route: 065
  7. RAPTIVA [Suspect]
     Active Substance: EFALIZUMAB
     Route: 065
  8. RAPTIVA [Suspect]
     Active Substance: EFALIZUMAB
     Route: 065
  9. RAPTIVA [Suspect]
     Active Substance: EFALIZUMAB
     Route: 065

REACTIONS (1)
  - Exposure during pregnancy [Unknown]
